FAERS Safety Report 8234943-8 (Version None)
Quarter: 2012Q1

REPORT INFORMATION
  Report Type: 
  Country: None (occurrence: None)
  Receive Date: 20120322
  Receipt Date: 20120315
  Transmission Date: 20120608
  Serious: Yes (Hospitalization, Other)
  Sender: FDA-Public Use
  Company Number: 2010SP057664

PATIENT
  Age: 28 Year
  Sex: Female
  Weight: 72.5755 kg

DRUGS (1)
  1. NUVARING [Suspect]
     Indication: CONTRACEPTION
     Dates: start: 20060101, end: 20081101

REACTIONS (16)
  - CHOLELITHIASIS [None]
  - GASTRITIS [None]
  - TACHYCARDIA [None]
  - CHOLECYSTITIS [None]
  - HEART RATE IRREGULAR [None]
  - TRICUSPID VALVE INCOMPETENCE [None]
  - ENDOMETRIOSIS [None]
  - AORTIC VALVE INCOMPETENCE [None]
  - CLAUSTROPHOBIA [None]
  - PULMONARY EMBOLISM [None]
  - MULTIPLE INJURIES [None]
  - PALPITATIONS [None]
  - THROMBOSIS [None]
  - PAIN [None]
  - OVARIAN CYST [None]
  - INJURY [None]
